FAERS Safety Report 6687572-1 (Version None)
Quarter: 2010Q2

REPORT INFORMATION
  Report Type: 
  Country: None (occurrence: None)
  Receive Date: 20100416
  Receipt Date: 20100416
  Transmission Date: 20101027
  Serious: No
  Sender: FDA-Public Use
  Company Number: None

PATIENT
  Sex: Female

DRUGS (1)
  1. KEPPRA [Suspect]
     Indication: CONVULSION
     Dosage: TAKE 3ML PO BID
     Route: 048
     Dates: start: 20070101

REACTIONS (2)
  - DISTURBANCE IN ATTENTION [None]
  - READING DISORDER [None]
